FAERS Safety Report 4545163-2 (Version None)
Quarter: 2005Q1

REPORT INFORMATION
  Report Type: 
  Country: None (occurrence: None)
  Receive Date: 20050104
  Receipt Date: 20050104
  Transmission Date: 20050727
  Serious: Yes (Other)
  Sender: FDA-Public Use
  Company Number: None

PATIENT
  Age: 38 Year
  Sex: Male
  Weight: 125.8278 kg

DRUGS (4)
  1. PAROXETINE HCL [Suspect]
     Indication: ANXIETY
     Dosage: 20 MG DAILY
     Dates: start: 20030901, end: 20031001
  2. ZANTAC [Concomitant]
  3. NAPROXEN [Concomitant]
  4. TRIAMCINOLONE [Concomitant]

REACTIONS (2)
  - ANGER [None]
  - PHARMACEUTICAL PRODUCT COMPLAINT [None]
